FAERS Safety Report 8160911-0 (Version None)
Quarter: 2012Q1

REPORT INFORMATION
  Report Type: 
  Country: None (occurrence: None)
  Receive Date: 20120223
  Receipt Date: 20120220
  Transmission Date: 20120608
  Serious: Yes (Life-Threatening, Hospitalization, Disabling, Other)
  Sender: FDA-Public Use
  Company Number: DE-MERCK-1111DEU00059

PATIENT
  Age: 66 Year
  Sex: Male

DRUGS (8)
  1. BISOPROLOL [Concomitant]
     Route: 048
  2. ASPIRIN [Concomitant]
     Route: 048
  3. AMLODIPINE MESYLATE [Concomitant]
     Route: 048
  4. TAFLUPROST [Concomitant]
     Route: 047
  5. CLONIDINE HYDROCHLORIDE [Concomitant]
     Route: 047
  6. JANUMET [Suspect]
     Indication: TYPE 2 DIABETES MELLITUS
     Route: 048
     Dates: start: 20110221, end: 20110426
  7. VYTORIN [Concomitant]
     Route: 048
  8. HYDROCHLOROTHIAZIDE AND VALSARTAN [Concomitant]
     Route: 048

REACTIONS (8)
  - RENAL FAILURE CHRONIC [None]
  - PULMONARY MASS [None]
  - HYPERTENSION [None]
  - DUODENITIS [None]
  - GASTRITIS EROSIVE [None]
  - HEPATIC CIRRHOSIS [None]
  - GASTROOESOPHAGEAL REFLUX DISEASE [None]
  - PANCREATIC CARCINOMA [None]
